FAERS Safety Report 18322233 (Version 1)
Quarter: 2020Q3

REPORT INFORMATION
  Report Type: Spontaneous
  Country: US (occurrence: US)
  Receive Date: 20200928
  Receipt Date: 20200928
  Transmission Date: 20201103
  Serious: No
  Sender: FDA-Public Use
  Company Number: None

PATIENT
  Age: 51 Year
  Sex: Female
  Weight: 56.25 kg

DRUGS (1)
  1. EMGALITY [Suspect]
     Active Substance: GALCANEZUMAB-GNLM
     Indication: MIGRAINE
     Dates: start: 20200921

REACTIONS (8)
  - Myalgia [None]
  - Headache [None]
  - Arthralgia [None]
  - Anxiety [None]
  - Diarrhoea [None]
  - Insomnia [None]
  - Constipation [None]
  - Palpitations [None]

NARRATIVE: CASE EVENT DATE: 20200921
